FAERS Safety Report 17464116 (Version 1)
Quarter: 2020Q1

REPORT INFORMATION
  Report Type: Report from Study
  Country: US (occurrence: US)
  Receive Date: 20200226
  Receipt Date: 20200226
  Transmission Date: 20200409
  Serious: Yes (Death, Hospitalization, Other)
  Sender: FDA-Public Use
  Company Number: US-ROCHE-2463253

PATIENT
  Age: 81 Year
  Sex: Male
  Weight: 67.65 kg

DRUGS (2)
  1. ATEZOLIZUMAB. [Suspect]
     Active Substance: ATEZOLIZUMAB
     Indication: MYELODYSPLASTIC SYNDROME
     Dosage: D3 +D22?LAST ATEZOLIZUMAB DOSE GIVEN ON 29/JAN/2020.
     Route: 041
     Dates: start: 20191027
  2. GUADECITABINE [Suspect]
     Active Substance: GUADECITABINE
     Indication: MYELODYSPLASTIC SYNDROME
     Dosage: D1 + D5?LAST GAUDECITABINE DOSE GIVEN ON 26/JAN/2020
     Route: 058
     Dates: start: 20191030

REACTIONS (6)
  - Cellulitis [Recovered/Resolved]
  - Febrile neutropenia [Fatal]
  - Sepsis [Unknown]
  - Febrile neutropenia [Recovered/Resolved]
  - Colitis [Unknown]
  - Cardio-respiratory arrest [Fatal]

NARRATIVE: CASE EVENT DATE: 20191101
